FAERS Safety Report 6055526-4 (Version None)
Quarter: 2009Q1

REPORT INFORMATION
  Report Type: 
  Country: None (occurrence: None)
  Receive Date: 20090128
  Receipt Date: 20090119
  Transmission Date: 20090719
  Serious: Yes (Life-Threatening, Hospitalization)
  Sender: FDA-Public Use
  Company Number: B0528113A

PATIENT
  Age: 29 Year
  Sex: Female

DRUGS (6)
  1. ARIXTRA [Suspect]
     Indication: THROMBOPHLEBITIS
     Dosage: 7.5MG PER DAY
     Route: 058
     Dates: start: 20080519
  2. PREVISCAN [Suspect]
     Indication: THROMBOPHLEBITIS
     Route: 048
     Dates: start: 20080519, end: 20080609
  3. AMARYL [Concomitant]
     Dosage: 6MG PER DAY
     Route: 065
  4. GLUCOPHAGE [Concomitant]
     Dosage: 1000MG THREE TIMES PER DAY
     Route: 065
  5. ACARBOSE [Concomitant]
     Dosage: 100MG TWICE PER DAY
     Route: 065
  6. COAPROVEL [Concomitant]
     Dosage: 300MG PER DAY
     Route: 065

REACTIONS (6)
  - APHASIA [None]
  - CEREBRAL HAEMORRHAGE [None]
  - COMMUNICATION DISORDER [None]
  - CONVULSION [None]
  - EXTRADURAL HAEMATOMA [None]
  - HEAD DEFORMITY [None]
